FAERS Safety Report 6804352-4 (Version None)
Quarter: 2010Q2

REPORT INFORMATION
  Report Type: 
  Country: None (occurrence: None)
  Receive Date: 20100628
  Receipt Date: 20070522
  Transmission Date: 20101027
  Serious: No
  Sender: FDA-Public Use
  Company Number: US-PFIZER INC-2007019619

PATIENT
  Sex: Female
  Weight: 72.57 kg

DRUGS (1)
  1. GEODON [Suspect]
     Indication: DEPRESSION
     Route: 048

REACTIONS (1)
  - DRUG SCREEN POSITIVE [None]
